FAERS Safety Report 20577203 (Version 2)
Quarter: 2022Q1

REPORT INFORMATION
  Report Type: Spontaneous
  Country: US (occurrence: US)
  Receive Date: 20220310
  Receipt Date: 20220325
  Transmission Date: 20220424
  Serious: Yes (Hospitalization)
  Sender: FDA-Public Use
  Company Number: US-TEVA-2022-US-2014135

PATIENT
  Age: 49 Year
  Sex: Male

DRUGS (3)
  1. OXALIPLATIN [Suspect]
     Active Substance: OXALIPLATIN
     Indication: Neoplasm malignant
     Dosage: RECEIVE SEVEN CYCLE; AS PART OF FOLFOX REGIMEN
     Route: 065
  2. LEUCOVORIN [Concomitant]
     Active Substance: LEUCOVORIN
     Indication: Neoplasm malignant
     Dosage: RECEIVE SEVEN CYCLE AS PART OF FOLFOX REGIMEN
     Route: 065
  3. FLUOROURACIL [Concomitant]
     Active Substance: FLUOROURACIL
     Indication: Neoplasm malignant
     Dosage: RECEIVE SEVEN CYCLE AS PART OF FOLFOX REGIMEN
     Route: 065

REACTIONS (2)
  - Ischaemia [Recovering/Resolving]
  - Extremity necrosis [Recovering/Resolving]
